FAERS Safety Report 7298056-4 (Version None)
Quarter: 2011Q1

REPORT INFORMATION
  Report Type: 
  Country: None (occurrence: None)
  Receive Date: 20110217
  Receipt Date: 20110209
  Transmission Date: 20110831
  Serious: Yes (Hospitalization, Other)
  Sender: FDA-Public Use
  Company Number: US-US-EMD SERONO, INC.-7041475

PATIENT
  Sex: Female

DRUGS (1)
  1. REBIF [Suspect]
     Indication: PRODUCT USED FOR UNKNOWN INDICATION
     Route: 058
     Dates: start: 20050209

REACTIONS (6)
  - INJECTION SITE DISCOLOURATION [None]
  - INJECTION SITE WARMTH [None]
  - INJECTION SITE PAIN [None]
  - TERATOMA BENIGN [None]
  - INJECTION SITE NODULE [None]
  - INJECTION SITE HAEMATOMA [None]
